FAERS Safety Report 7586169-9 (Version None)
Quarter: 2011Q3

REPORT INFORMATION
  Report Type: 
  Country: None (occurrence: None)
  Receive Date: 20110701
  Receipt Date: 20110616
  Transmission Date: 20111222
  Serious: No
  Sender: FDA-Public Use
  Company Number: US-B.I. PHARMACEUTICALS,INC./RIDGEFIELD-2011-BP-15689BP

PATIENT
  Sex: Female

DRUGS (9)
  1. ASPIRIN [Concomitant]
     Indication: ARTHRITIS
     Route: 048
  2. SINGULAIR [Concomitant]
     Indication: ASTHMA
     Dosage: 10 MG
     Route: 048
  3. SPIRIVA [Suspect]
     Indication: ASTHMA
     Dosage: 18 MCG
     Route: 055
     Dates: start: 20110615, end: 20110616
  4. JANUVIA [Concomitant]
     Indication: DIABETES MELLITUS
     Dosage: 100 MG
     Route: 048
  5. SIMVASTATIN [Concomitant]
     Indication: BLOOD CHOLESTEROL INCREASED
     Dosage: 20 MG
     Route: 048
  6. CILOXAN [Concomitant]
     Indication: PROPHYLAXIS
  7. GLUCOTROL XL [Concomitant]
     Indication: DIABETES MELLITUS
     Dosage: 20 MG
     Route: 048
  8. CAPTOPRIL [Concomitant]
     Indication: HYPERTENSION
     Dosage: 75 MG
     Route: 048
  9. METFORMIN HCL [Concomitant]
     Indication: DIABETES MELLITUS
     Dosage: 2500 MG
     Route: 048

REACTIONS (9)
  - EYE IRRITATION [None]
  - COUGH [None]
  - OROPHARYNGEAL PAIN [None]
  - VISUAL ACUITY REDUCED [None]
  - RHINORRHOEA [None]
  - DIZZINESS [None]
  - PHARYNGEAL ERYTHEMA [None]
  - OCULAR HYPERAEMIA [None]
  - DARK CIRCLES UNDER EYES [None]
